FAERS Safety Report 9509291 (Version 1)
Quarter: 2013Q3

REPORT INFORMATION
  Report Type: Spontaneous
  Country: US (occurrence: US)
  Receive Date: 20130909
  Receipt Date: 20130909
  Transmission Date: 20140515
  Serious: No
  Sender: FDA-Public Use
  Company Number: US-BRISTOL-MYERS SQUIBB COMPANY-17324013

PATIENT
  Age: 55 Year
  Sex: Female
  Weight: 72.56 kg

DRUGS (4)
  1. ABILIFY [Suspect]
     Indication: PANIC REACTION
  2. ABILIFY [Suspect]
     Indication: ANXIETY
  3. ABILIFY [Suspect]
     Indication: FEAR
  4. PRISTIQ [Suspect]

REACTIONS (6)
  - Alopecia [Unknown]
  - Decreased appetite [Unknown]
  - Hunger [Unknown]
  - Weight increased [Unknown]
  - Drug ineffective [Unknown]
  - Abnormal behaviour [Unknown]
